FAERS Safety Report 5164357-9 (Version None)
Quarter: 2006Q4

REPORT INFORMATION
  Report Type: 
  Country: None (occurrence: None)
  Receive Date: 20061127
  Receipt Date: 20061127
  Transmission Date: 20070319
  Serious: Yes (Death)
  Sender: FDA-Public Use
  Company Number: None

PATIENT
  Age: 47 Year
  Sex: Male

DRUGS (9)
  1. COUMADIN [Suspect]
     Dosage: 5 MG DAILY PO
     Route: 048
  2. GEMFIBROZIL [Concomitant]
  3. FELODIPINE [Concomitant]
  4. ALLOPURINOL [Concomitant]
  5. LISINOPRIL [Concomitant]
  6. ZETIA [Concomitant]
  7. ASPIRIN [Concomitant]
  8. METOPROLOL SUCCINATE [Concomitant]
  9. ATORVASTATIN CALCIUM [Concomitant]

REACTIONS (5)
  - ASTHENIA [None]
  - EPISTAXIS [None]
  - HAEMORRHAGE INTRACRANIAL [None]
  - INTERNATIONAL NORMALISED RATIO INCREASED [None]
  - MOUTH HAEMORRHAGE [None]
